FAERS Safety Report 24089310 (Version 1)
Quarter: 2024Q3

REPORT INFORMATION
  Report Type: Spontaneous
  Country: US (occurrence: US)
  Receive Date: 20240715
  Receipt Date: 20240715
  Transmission Date: 20241017
  Serious: No
  Sender: ELI LILLY AND CO
  Company Number: US-ELI_LILLY_AND_COMPANY-US202407007800

PATIENT
  Age: 70 Year
  Sex: Female

DRUGS (6)
  1. BASAGLAR [Suspect]
     Active Substance: INSULIN GLARGINE
     Indication: Product used for unknown indication
     Dosage: 10 U, UNKNOWN
     Route: 065
     Dates: start: 202312
  2. BASAGLAR [Suspect]
     Active Substance: INSULIN GLARGINE
     Indication: Product used for unknown indication
     Dosage: 10 U, UNKNOWN
     Route: 065
     Dates: start: 202312
  3. BASAGLAR [Suspect]
     Active Substance: INSULIN GLARGINE
     Dosage: 8 U, UNKNOWN
     Route: 065
  4. BASAGLAR [Suspect]
     Active Substance: INSULIN GLARGINE
     Dosage: 8 U, UNKNOWN
     Route: 065
  5. BASAGLAR [Suspect]
     Active Substance: INSULIN GLARGINE
     Dosage: 6 U, UNKNOWN
     Route: 065
  6. BASAGLAR [Suspect]
     Active Substance: INSULIN GLARGINE
     Dosage: 6 U, UNKNOWN
     Route: 065

REACTIONS (3)
  - Blood glucose increased [Not Recovered/Not Resolved]
  - Accidental underdose [Unknown]
  - Blood glucose decreased [Not Recovered/Not Resolved]
